FAERS Safety Report 9669446 (Version 1)
Quarter: 2013Q4

REPORT INFORMATION
  Report Type: Report from Study
  Country: CA (occurrence: CA)
  Receive Date: 20131105
  Receipt Date: 20131105
  Transmission Date: 20140711
  Serious: Yes (Hospitalization)
  Sender: FDA-Public Use
  Company Number: CA-JNJFOC-20131017985

PATIENT
  Age: 1 Day
  Sex: Male
  Weight: 4.54 kg

DRUGS (7)
  1. REMICADE [Suspect]
     Indication: CROHN^S DISEASE
     Route: 042
     Dates: start: 20090318
  2. PROPRANOLOL [Suspect]
     Indication: PRODUCT USED FOR UNKNOWN INDICATION
     Route: 065
  3. ADVAIR [Suspect]
     Indication: PRODUCT USED FOR UNKNOWN INDICATION
     Route: 065
  4. MSIR [Suspect]
     Indication: PRODUCT USED FOR UNKNOWN INDICATION
     Route: 065
  5. VITAMIN D [Concomitant]
     Route: 065
  6. CALCIUM [Concomitant]
     Route: 065
  7. FOLIC ACID [Concomitant]
     Route: 065

REACTIONS (3)
  - Foetal exposure during pregnancy [Recovered/Resolved]
  - Heart rate decreased [Unknown]
  - Foetal growth restriction [Unknown]
